FAERS Safety Report 5358812-6 (Version None)
Quarter: 2007Q2

REPORT INFORMATION
  Report Type: 
  Country: None (occurrence: None)
  Receive Date: 20070615
  Receipt Date: 20070605
  Transmission Date: 20071010
  Serious: Yes (Life-Threatening, Hospitalization)
  Sender: FDA-Public Use
  Company Number: DE-AMGEN-US227335

PATIENT
  Sex: Female
  Weight: 65 kg

DRUGS (3)
  1. ENBREL [Suspect]
     Indication: POLYARTHRITIS
     Dosage: 50 MG PER WEEK
     Route: 058
     Dates: start: 20050901, end: 20070401
  2. VOLTAREN [Suspect]
     Indication: POLYARTHRITIS
     Dosage: 2 CAPSULES PER DAY
     Route: 048
  3. SYNTESTAN [Suspect]
     Indication: POLYARTHRITIS
     Dosage: 5-10 MG PER DAY
     Route: 048

REACTIONS (1)
  - COLITIS [None]
